FAERS Safety Report 5470525-9 (Version None)
Quarter: 2007Q3

REPORT INFORMATION
  Report Type: 
  Country: None (occurrence: None)
  Receive Date: 20070927
  Receipt Date: 20070927
  Transmission Date: 20080115
  Serious: Yes (Life-Threatening, Disabling)
  Sender: FDA-Public Use
  Company Number: None

PATIENT
  Age: 56 Year
  Sex: Male
  Weight: 90.7194 kg

DRUGS (5)
  1. HEPARIN [Suspect]
     Indication: PULMONARY EMBOLISM
     Dosage: 100 UNITS/KG LOADING DOSE IV BOLUS 20 UNITS/KG/HR CONTINUEOUS IV DRIP
     Route: 040
     Dates: start: 20070918, end: 20070920
  2. LISINOPRIL [Concomitant]
  3. METOPROLOL TARTRATE [Concomitant]
  4. SIMVASTATIN [Concomitant]
  5. ACETAMINOPHEN [Concomitant]

REACTIONS (1)
  - HEPARIN-INDUCED THROMBOCYTOPENIA [None]
